FAERS Safety Report 4588223-2 (Version None)
Quarter: 2005Q1

REPORT INFORMATION
  Report Type: 
  Country: None (occurrence: None)
  Receive Date: 20050221
  Receipt Date: 20050209
  Transmission Date: 20050727
  Serious: Yes (Hospitalization)
  Sender: FDA-Public Use
  Company Number: IE-ROCHE-395053

PATIENT
  Age: 62 Year
  Sex: Female

DRUGS (1)
  1. CAPECITABINE [Suspect]
     Indication: BREAST CANCER
     Dosage: DOSE REPORTED AS 4600 (NO UNIT'S PROVIDED). PATIENT HAD REVEICE 7 CYCLES.
     Route: 048

REACTIONS (2)
  - CELLULITIS [None]
  - VULVAL CELLULITIS [None]
